FAERS Safety Report 9684169 (Version 1)
Quarter: 2013Q4

REPORT INFORMATION
  Report Type: Spontaneous
  Country: US (occurrence: None)
  Receive Date: 20131111
  Receipt Date: 20131111
  Transmission Date: 20140711
  Serious: Yes (Life-Threatening, Hospitalization)
  Sender: FDA-Public Use
  Company Number: None

PATIENT
  Age: 33 Year
  Sex: Female

DRUGS (3)
  1. YASMIN [Suspect]
     Indication: CONTRACEPTION
     Dosage: ONCE DAILY TAKEN MOUTH
     Dates: start: 19990101, end: 20080101
  2. YASMIN [Suspect]
     Dosage: ONCE DAILY TAKEN MOUTH
     Dates: start: 19990101, end: 20080101
  3. YAZ [Suspect]
     Indication: CONTRACEPTION

REACTIONS (2)
  - Wolff-Parkinson-White syndrome [None]
  - Spider vein [None]
